FAERS Safety Report 7884576-8 (Version None)
Quarter: 2011Q4

REPORT INFORMATION
  Report Type: 
  Country: None (occurrence: None)
  Receive Date: 20111102
  Receipt Date: 20111024
  Transmission Date: 20120403
  Serious: No
  Sender: FDA-Public Use
  Company Number: US-B.I. PHARMACEUTICALS,INC./RIDGEFIELD-2011-BP-23567BP

PATIENT
  Age: 70 Year
  Sex: Female
  Weight: 49.67 kg

DRUGS (16)
  1. PRADAXA [Suspect]
     Indication: ATRIAL FIBRILLATION
     Dosage: 300 MG
     Route: 048
     Dates: start: 20110607, end: 20111005
  2. LEVOTHYROXINE SODIUM [Concomitant]
     Indication: THYROID DISORDER
     Dosage: 100 MCG
     Route: 048
  3. ZITHROMAX [Concomitant]
     Indication: CHRONIC OBSTRUCTIVE PULMONARY DISEASE
     Route: 048
  4. VITAMIN B-12 [Concomitant]
     Indication: ROUTINE HEALTH MAINTENANCE
     Route: 048
  5. VITAMIN D [Concomitant]
     Indication: ROUTINE HEALTH MAINTENANCE
     Route: 048
  6. XOPENEX NEBULIZER [Concomitant]
     Indication: PULMONARY HYPERTENSION
     Route: 055
  7. MAGNESIUM [Concomitant]
     Indication: ROUTINE HEALTH MAINTENANCE
     Route: 048
  8. RAMIPRIL [Concomitant]
     Indication: HYPERTENSION
     Dosage: 2.5 MG
     Route: 048
  9. LANOXIN [Concomitant]
     Indication: ATRIAL FIBRILLATION
     Route: 048
  10. TRACLEER [Concomitant]
     Indication: PULMONARY HYPERTENSION
     Dosage: 250 MG
     Route: 048
  11. VERAPAMIL [Concomitant]
     Indication: ATRIAL FIBRILLATION
     Dosage: 240 MG
     Route: 048
  12. POTASSIUM CHLORIDE [Concomitant]
     Indication: BLOOD POTASSIUM DECREASED
     Dosage: 10 MEQ
     Route: 048
  13. ADVAIR DISKUS 100/50 [Concomitant]
     Indication: PULMONARY HYPERTENSION
     Route: 055
  14. DEMADEX [Concomitant]
     Indication: FLUID RETENTION
     Dosage: 20 MG
     Route: 048
  15. SUPPLEMENTAL OXYGEN [Concomitant]
     Indication: OXYGEN SATURATION DECREASED
     Route: 055
  16. SPIRIVA [Concomitant]
     Indication: PULMONARY HYPERTENSION
     Dosage: 18 MCG
     Route: 055

REACTIONS (3)
  - HAEMATOCRIT DECREASED [None]
  - ANAEMIA [None]
  - HAEMOGLOBIN DECREASED [None]
